FAERS Safety Report 5144137-0 (Version None)
Quarter: 2006Q4

REPORT INFORMATION
  Report Type: 
  Country: None (occurrence: None)
  Receive Date: 20061106
  Receipt Date: 20061024
  Transmission Date: 20070319
  Serious: Yes (Other)
  Sender: FDA-Public Use
  Company Number: US-AMGEN-US197915

PATIENT
  Sex: Female

DRUGS (8)
  1. NEULASTA [Suspect]
     Indication: CHEMOTHERAPY
     Route: 058
     Dates: start: 20060801
  2. ADRIAMYCIN PFS [Concomitant]
     Route: 065
  3. TAXOL [Concomitant]
     Route: 065
  4. CYTOXAN [Concomitant]
     Route: 065
  5. METFORMIN HCL [Concomitant]
     Route: 065
  6. AVANDIA [Concomitant]
     Route: 065
  7. AMARYL [Concomitant]
     Route: 065
  8. LOSARTAN/HYDROCHLOROTHIAZIDE [Concomitant]
     Route: 065

REACTIONS (3)
  - ABASIA [None]
  - ARTHRALGIA [None]
  - BONE PAIN [None]
